FAERS Safety Report 4697833-3 (Version None)
Quarter: 2005Q2

REPORT INFORMATION
  Report Type: 
  Country: None (occurrence: None)
  Receive Date: 20050621
  Receipt Date: 20050621
  Transmission Date: 20051028
  Serious: Yes (Other)
  Sender: FDA-Public Use
  Company Number: None

PATIENT
  Age: 23 Year
  Sex: Female
  Weight: 63.5036 kg

DRUGS (2)
  1. LEXAPRO [Suspect]
     Indication: DEPRESSION
     Dosage: 10MG   1 Q HS   ORAL
     Route: 048
  2. DEXATRIM MAX [Suspect]
     Indication: OVERWEIGHT
     Dosage: 1 TAB   1 Q AM   ORAL
     Route: 048

REACTIONS (3)
  - INSOMNIA [None]
  - PSYCHOMOTOR HYPERACTIVITY [None]
  - THINKING ABNORMAL [None]
